FAERS Safety Report 10149185 (Version 2)
Quarter: 2014Q2

REPORT INFORMATION
  Report Type: Spontaneous
  Country: DE (occurrence: None)
  Receive Date: 20140430
  Receipt Date: 20140505
  Transmission Date: 20141212
  Serious: Yes (Disabling)
  Sender: FDA-Public Use
  Company Number: AUR-APL-2014-05107

PATIENT
  Age: 20 Year
  Sex: Female
  Weight: 58 kg

DRUGS (2)
  1. TOPIRAMATE [Suspect]
     Indication: EPILEPSY
     Dosage: 150 MG (75 MG,2 IN 1 D),ORAL
     Route: 048
     Dates: start: 201109, end: 2014
  2. LACOSAMID [Suspect]
     Indication: EPILEPSY
     Dosage: 2X75 MG TO 2X100 MG TGL,ORAL
     Route: 048
     Dates: start: 201112, end: 2014

REACTIONS (1)
  - Retinal vascular occlusion [None]
